FAERS Safety Report 19735810 (Version 1)
Quarter: 2021Q3

REPORT INFORMATION
  Report Type: Report from Study
  Country: US (occurrence: US)
  Receive Date: 20210823
  Receipt Date: 20210823
  Transmission Date: 20211014
  Serious: Yes (Hospitalization)
  Sender: FDA-Public Use
  Company Number: US-ACCORD-235945

PATIENT
  Age: 26 Year
  Sex: Female

DRUGS (1)
  1. CLOZAPINE ACCORD [Suspect]
     Active Substance: CLOZAPINE
     Route: 048

REACTIONS (8)
  - Psychotic disorder [Unknown]
  - Paranoia [Unknown]
  - Neutrophilia [Unknown]
  - Suicidal ideation [Unknown]
  - Impulsive behaviour [Unknown]
  - Anxiety [Unknown]
  - Psychiatric symptom [Unknown]
  - Aggression [Unknown]

NARRATIVE: CASE EVENT DATE: 20210810
